FAERS Safety Report 17057814 (Version 1)
Quarter: 2019Q4

REPORT INFORMATION
  Report Type: Spontaneous
  Country: US (occurrence: US)
  Receive Date: 20191120
  Receipt Date: 20191120
  Transmission Date: 20200122
  Serious: Yes (Other)
  Sender: FDA-Public Use
  Company Number: None

PATIENT
  Age: 32 Year
  Sex: Female
  Weight: 83.25 kg

DRUGS (1)
  1. DOXYCYCLINE HYCLATE 100 MG TAB TABLET [Suspect]
     Active Substance: DOXYCYCLINE HYCLATE
     Indication: UREAPLASMA INFECTION
     Dosage: ?          QUANTITY:1 TABLET(S);?
     Route: 048
     Dates: start: 20191020, end: 20191022

REACTIONS (13)
  - Nausea [None]
  - Migraine [None]
  - Bedridden [None]
  - Dizziness [None]
  - Vision blurred [None]
  - Eye pain [None]
  - Postural orthostatic tachycardia syndrome [None]
  - Injury [None]
  - Dehydration [None]
  - Gait disturbance [None]
  - Condition aggravated [None]
  - Headache [None]
  - Feeling abnormal [None]

NARRATIVE: CASE EVENT DATE: 20191022
